FAERS Safety Report 16295726 (Version 1)
Quarter: 2019Q2

REPORT INFORMATION
  Report Type: Spontaneous
  Country: US (occurrence: US)
  Receive Date: 20190510
  Receipt Date: 20190510
  Transmission Date: 20190711
  Serious: No
  Sender: FDA-Public Use
  Company Number: US-ALKERMES INC.-ALK-2019-000688

PATIENT
  Age: 28 Year
  Sex: Male
  Weight: 82.54 kg

DRUGS (1)
  1. VIVITROL [Suspect]
     Active Substance: NALTREXONE
     Indication: DRUG DEPENDENCE
     Dosage: 380 MG, QMO
     Route: 030
     Dates: start: 201810

REACTIONS (6)
  - Mood swings [Unknown]
  - Somnolence [Recovered/Resolved]
  - Product physical consistency issue [Unknown]
  - Injection site reaction [Recovered/Resolved]
  - Personality change [Recovered/Resolved]
  - Injection site pain [Recovered/Resolved]
